FAERS Safety Report 10048822 (Version 1)
Quarter: 2014Q1

REPORT INFORMATION
  Report Type: Spontaneous
  Country: US (occurrence: US)
  Receive Date: 20140331
  Receipt Date: 20140331
  Transmission Date: 20141002
  Serious: No
  Sender: FDA-Public Use
  Company Number: US-PFIZER INC-2014089338

PATIENT
  Age: 30 Year
  Sex: Male
  Weight: 74.83 kg

DRUGS (1)
  1. NEURONTIN [Suspect]
     Indication: BACK INJURY
     Dosage: 800 MG, 4X/DAY
     Dates: start: 201311, end: 20140322

REACTIONS (4)
  - Vision blurred [Unknown]
  - Malaise [Unknown]
  - Depression [Unknown]
  - Dizziness [Unknown]
